FAERS Safety Report 21432540 (Version 5)
Quarter: 2023Q2

REPORT INFORMATION
  Report Type: Report from Study
  Country: DE (occurrence: DE)
  Receive Date: 20221010
  Receipt Date: 20230519
  Transmission Date: 20230721
  Serious: Yes (Hospitalization)
  Sender: FDA-Public Use
  Company Number: DE-ROCHE-3174596

PATIENT
  Sex: Female

DRUGS (3)
  1. TYSABRI [Suspect]
     Active Substance: NATALIZUMAB
     Indication: Relapsing-remitting multiple sclerosis
     Dosage: MOST RECENT DOSE PRIOR TO AE 26/NOV/2021
     Route: 050
     Dates: start: 20200612
  2. OCRELIZUMAB [Suspect]
     Active Substance: OCRELIZUMAB
     Indication: Relapsing multiple sclerosis
     Route: 050
     Dates: start: 20220726
  3. OCRELIZUMAB [Suspect]
     Active Substance: OCRELIZUMAB
     Route: 050
     Dates: start: 20220121, end: 20220204

REACTIONS (3)
  - Flank pain [Recovered/Resolved]
  - Pyelonephritis [Recovered/Resolved]
  - Nasopharyngitis [Recovered/Resolved]
